FAERS Safety Report 18599543 (Version 1)
Quarter: 2020Q4

REPORT INFORMATION
  Report Type: Spontaneous
  Country: US (occurrence: US)
  Receive Date: 20201209
  Receipt Date: 20201209
  Transmission Date: 20210114
  Serious: Yes (Other)
  Sender: FDA-Public Use
  Company Number: None

PATIENT
  Age: 81 Year
  Sex: Female
  Weight: 72 kg

DRUGS (12)
  1. OLMESARTAN-HCTZ [Concomitant]
     Active Substance: HYDROCHLOROTHIAZIDE\OLMESARTAN MEDOXOMIL
  2. MECLIZINE [Concomitant]
     Active Substance: MECLIZINE HYDROCHLORIDE
  3. TUMS EX [Concomitant]
     Active Substance: CALCIUM CARBONATE
  4. METOPROLOL. [Concomitant]
     Active Substance: METOPROLOL
  5. ANASTROZOLE. [Concomitant]
     Active Substance: ANASTROZOLE
  6. LIPITOR [Concomitant]
     Active Substance: ATORVASTATIN CALCIUM
  7. XARELTO [Concomitant]
     Active Substance: RIVAROXABAN
  8. IBRANCE [Suspect]
     Active Substance: PALBOCICLIB
     Indication: BREAST CANCER
     Route: 048
     Dates: start: 20201118
  9. POTASSIUM CL ER [Concomitant]
     Active Substance: POTASSIUM CHLORIDE
  10. PROTONIX [Concomitant]
     Active Substance: PANTOPRAZOLE SODIUM
  11. TRAMADOL. [Concomitant]
     Active Substance: TRAMADOL
  12. LASIX [Concomitant]
     Active Substance: FUROSEMIDE

REACTIONS (2)
  - Fatigue [None]
  - Insomnia [None]

NARRATIVE: CASE EVENT DATE: 20201209
